FAERS Safety Report 14251197 (Version 1)
Quarter: 2017Q4

REPORT INFORMATION
  Report Type: Spontaneous
  Country: US (occurrence: US)
  Receive Date: 20171205
  Receipt Date: 20171205
  Transmission Date: 20180321
  Serious: No
  Sender: FDA-Public Use
  Company Number: US-TARO-2017TAR00074

PATIENT
  Sex: Male

DRUGS (1)
  1. FLUOROURACIL TOPICAL SOLUTION USP 5% [Suspect]
     Active Substance: FLUOROURACIL
     Indication: CHRONIC ACTINIC DERMATITIS
     Dosage: UNK, 2X/DAY
     Route: 061
     Dates: start: 20161219

REACTIONS (1)
  - Fatigue [Not Recovered/Not Resolved]

NARRATIVE: CASE EVENT DATE: 20161219
